FAERS Safety Report 25769425 (Version 2)
Quarter: 2025Q3

REPORT INFORMATION
  Report Type: Spontaneous
  Country: JP (occurrence: JP)
  Receive Date: 20250906
  Receipt Date: 20250910
  Transmission Date: 20251021
  Serious: Yes (Hospitalization, Disabling, Other)
  Sender: CELLTRION
  Company Number: JP-CELLTRION INC.-2025JP031541

PATIENT

DRUGS (4)
  1. TRASTUZUMAB [Suspect]
     Active Substance: TRASTUZUMAB
     Indication: Breast cancer
     Route: 041
     Dates: start: 20250519, end: 20250617
  2. TRASTUZUMAB [Suspect]
     Active Substance: TRASTUZUMAB
     Route: 041
     Dates: start: 20250513, end: 20250617
  3. PERJETA [Concomitant]
     Active Substance: PERTUZUMAB
     Indication: Breast cancer
     Route: 042
     Dates: start: 20250513, end: 20250617
  4. BILANOA OD [Concomitant]

REACTIONS (7)
  - Demyelination [Recovering/Resolving]
  - Intracranial mass [Recovering/Resolving]
  - Acalculia [Recovering/Resolving]
  - Diplopia [Recovering/Resolving]
  - Visual field defect [Recovering/Resolving]
  - Cognitive disorder [Recovering/Resolving]
  - Overdose [Unknown]

NARRATIVE: CASE EVENT DATE: 20250617
